FAERS Safety Report 6496983-9 (Version None)
Quarter: 2009Q4

REPORT INFORMATION
  Report Type: 
  Country: None (occurrence: None)
  Receive Date: 20091215
  Receipt Date: 20081124
  Transmission Date: 20100525
  Serious: No
  Sender: FDA-Public Use
  Company Number: A0758106A

PATIENT
  Age: 64 Year
  Sex: Male

DRUGS (5)
  1. AVODART [Suspect]
     Indication: BENIGN PROSTATIC HYPERPLASIA
     Dosage: .5MG AT NIGHT
     Route: 048
  2. METOPROLOL [Concomitant]
  3. JANUVIA [Concomitant]
  4. ZOCOR [Concomitant]
  5. ZOLOFT [Concomitant]

REACTIONS (2)
  - DIZZINESS [None]
  - DYSPNOEA [None]
